FAERS Safety Report 21555052 (Version 1)
Quarter: 2022Q4

REPORT INFORMATION
  Report Type: Spontaneous
  Country: CH (occurrence: CH)
  Receive Date: 20221104
  Receipt Date: 20221104
  Transmission Date: 20230112
  Serious: Yes (Other)
  Sender: FDA-Public Use
  Company Number: CH-SM-2022-18978

PATIENT
  Age: 22 Year
  Sex: Female

DRUGS (3)
  1. VUMERITY [Suspect]
     Active Substance: DIROXIMEL FUMARATE
     Indication: Multiple sclerosis
     Dosage: VUMERITY? (DIROXIMEL FUMARATE) 462 MG, ORAL 1-0-1-0; FIRST DOSE ON 15-FEB-2022 TO 18-AUG2022
     Route: 050
     Dates: start: 20220215, end: 20220818
  2. CHOLECALCIFEROL [Concomitant]
     Active Substance: CHOLECALCIFEROL
     Indication: Mineral supplementation
     Dosage: VITAMIN D3 SANDOZ (CHOLECALCIFEROL), TABLETS, 1000 INTERNATIONAL UNITS (IU), 1-0-0-0 (SINCE 17- D...
     Route: 050
     Dates: start: 20211217
  3. Eisensubstitution (keine weiteren Angaben) (iron replacement) [Concomitant]
     Indication: Mineral supplementation
     Route: 050

REACTIONS (4)
  - Gastrointestinal pain [Not Recovered/Not Resolved]
  - Diarrhoea [Not Recovered/Not Resolved]
  - Abdominal pain [Not Recovered/Not Resolved]
  - Flushing [Not Recovered/Not Resolved]

NARRATIVE: CASE EVENT DATE: 20220215
